FAERS Safety Report 9034379 (Version 1)
Quarter: 2013Q1

REPORT INFORMATION
  Report Type: Spontaneous
  Country: IT (occurrence: IT)
  Receive Date: 20130128
  Receipt Date: 20130128
  Transmission Date: 20140127
  Serious: Yes (Other)
  Sender: FDA-Public Use
  Company Number: IT-SANOFI-AVENTIS-2013SA004733

PATIENT
  Age: 75 Year
  Sex: Male

DRUGS (4)
  1. CLEXANE [Suspect]
     Indication: PHLEBITIS
     Route: 058
     Dates: start: 20120517, end: 20120530
  2. TORVAST [Concomitant]
  3. XANAX [Concomitant]
  4. BISOPROLOL [Concomitant]

REACTIONS (4)
  - Abdominal pain upper [Recovering/Resolving]
  - Decreased appetite [Recovering/Resolving]
  - Dysphagia [Recovering/Resolving]
  - Dermatitis allergic [Recovering/Resolving]
